FAERS Safety Report 21052591 (Version 1)
Quarter: 2022Q3

REPORT INFORMATION
  Report Type: Spontaneous
  Country: US (occurrence: None)
  Receive Date: 20220707
  Receipt Date: 20220707
  Transmission Date: 20221026
  Serious: Yes (Other)
  Sender: FDA-Public Use
  Company Number: None

PATIENT
  Age: 52 Year
  Sex: Female
  Weight: 57.15 kg

DRUGS (1)
  1. ADDYI [Suspect]
     Active Substance: FLIBANSERIN
     Indication: Libido decreased

REACTIONS (6)
  - Nightmare [None]
  - Sleep terror [None]
  - Somnolence [None]
  - Hyperventilation [None]
  - Seizure [None]
  - Ocular hyperaemia [None]

NARRATIVE: CASE EVENT DATE: 20220707
